APPROVED DRUG PRODUCT: TRIHEXYPHENIDYL HYDROCHLORIDE
Active Ingredient: TRIHEXYPHENIDYL HYDROCHLORIDE
Strength: 5MG
Dosage Form/Route: TABLET;ORAL
Application: A040254 | Product #002 | TE Code: AA
Applicant: NOVITIUM PHARMA LLC
Approved: Dec 24, 1998 | RLD: No | RS: No | Type: RX